FAERS Safety Report 15209846 (Version 3)
Quarter: 2018Q3

REPORT INFORMATION
  Report Type: Spontaneous
  Country: CA (occurrence: CA)
  Receive Date: 20180727
  Receipt Date: 20180927
  Transmission Date: 20181010
  Serious: Yes (Hospitalization)
  Sender: FDA-Public Use
  Company Number: CA-ACTELION-A-NJ2018-173238

PATIENT
  Age: 70 Year
  Sex: Female

DRUGS (13)
  1. MELATONIN [Concomitant]
     Active Substance: MELATONIN
  2. FUROSEMIDE. [Concomitant]
     Active Substance: FUROSEMIDE
  3. UPTRAVI [Suspect]
     Active Substance: SELEXIPAG
     Dosage: 800 MCG, BID
     Route: 048
  4. SPIRIVA [Concomitant]
     Active Substance: TIOTROPIUM BROMIDE MONOHYDRATE
  5. UPTRAVI [Suspect]
     Active Substance: SELEXIPAG
     Indication: PULMONARY HYPERTENSION
     Dosage: 600 MCG, BID
     Route: 048
     Dates: start: 20180507
  6. PRAMIPEXOLE. [Concomitant]
     Active Substance: PRAMIPEXOLE
  7. ADALAT [Concomitant]
     Active Substance: NIFEDIPINE
  8. VOLIBRIS [Concomitant]
     Active Substance: AMBRISENTAN
  9. VENTOLIN [Concomitant]
     Active Substance: ALBUTEROL SULFATE
  10. UPTRAVI [Suspect]
     Active Substance: SELEXIPAG
     Dosage: 800 MCG, UNK
     Route: 048
  11. SYMBICORT [Concomitant]
     Active Substance: BUDESONIDE\FORMOTEROL FUMARATE DIHYDRATE
  12. CALCIUM [Concomitant]
     Active Substance: CALCIUM
  13. ADCIRCA [Concomitant]
     Active Substance: TADALAFIL

REACTIONS (7)
  - Peripheral swelling [Unknown]
  - Fatigue [Recovering/Resolving]
  - Pericardial effusion [Unknown]
  - Weight decreased [Unknown]
  - Hospitalisation [Not Recovered/Not Resolved]
  - Somnolence [Recovering/Resolving]
  - Therapy non-responder [Unknown]
